FAERS Safety Report 14202451 (Version 1)
Quarter: 2017Q4

REPORT INFORMATION
  Report Type: Spontaneous
  Country: US (occurrence: US)
  Receive Date: 20171117
  Receipt Date: 20171117
  Transmission Date: 20180321
  Serious: No
  Sender: FDA-Public Use
  Company Number: US-BAUSCH-BL-2017-019954

PATIENT
  Age: 59 Year
  Sex: Female

DRUGS (2)
  1. XENAZINE [Suspect]
     Active Substance: TETRABENAZINE
     Indication: DYSTONIA
     Dosage: 25 MG IN MORNING (AM) AND 12.5 MG AT NIGHT (PM)
     Route: 048
     Dates: start: 20160910
  2. MYRBETRIQ [Suspect]
     Active Substance: MIRABEGRON
     Indication: PRODUCT USED FOR UNKNOWN INDICATION
     Dosage: 6 WEEKS AGO
     Route: 065
     Dates: start: 2017

REACTIONS (5)
  - Tremor [Unknown]
  - Drug interaction [Unknown]
  - Dysphonia [Unknown]
  - Drug ineffective [Unknown]
  - Off label use [Not Recovered/Not Resolved]

NARRATIVE: CASE EVENT DATE: 20170201
